FAERS Safety Report 12872861 (Version 3)
Quarter: 2016Q4

REPORT INFORMATION
  Report Type: Spontaneous
  Country: JP (occurrence: JP)
  Receive Date: 20161021
  Receipt Date: 20161114
  Transmission Date: 20170207
  Serious: Yes (Other)
  Sender: FDA-Public Use
  Company Number: JP-BEH-2016074430

PATIENT
  Age: 52 Year
  Sex: Male
  Weight: 70 kg

DRUGS (4)
  1. ROHYPNOL [Concomitant]
     Active Substance: FLUNITRAZEPAM
     Route: 065
  2. DESMOPRESSIN (NC) [Suspect]
     Active Substance: DESMOPRESSIN
     Indication: DIABETES INSIPIDUS
     Dosage: UNK UNK, OD
     Route: 045
  3. MINIRIN [Suspect]
     Active Substance: DESMOPRESSIN ACETATE
     Indication: DIABETES INSIPIDUS
     Dosage: 60 ?G, BID
     Route: 048
  4. MINIRIN [Suspect]
     Active Substance: DESMOPRESSIN ACETATE
     Dosage: 60 ?G, OD
     Route: 048
     Dates: start: 2014

REACTIONS (13)
  - Thirst [Not Recovered/Not Resolved]
  - Photophobia [Not Recovered/Not Resolved]
  - Drug ineffective for unapproved indication [Not Recovered/Not Resolved]
  - Weight decreased [Not Recovered/Not Resolved]
  - Insomnia [Not Recovered/Not Resolved]
  - Affect lability [Not Recovered/Not Resolved]
  - Skin disorder [Not Recovered/Not Resolved]
  - Glycosylated haemoglobin increased [Not Recovered/Not Resolved]
  - Hyponatraemia [Not Recovered/Not Resolved]
  - Water intoxication [Not Recovered/Not Resolved]
  - Polyuria [Not Recovered/Not Resolved]
  - Dehydration [Not Recovered/Not Resolved]
  - Blood pressure increased [Not Recovered/Not Resolved]

NARRATIVE: CASE EVENT DATE: 201512
